FAERS Safety Report 4837022-2 (Version None)
Quarter: 2005Q4

REPORT INFORMATION
  Report Type: 
  Country: None (occurrence: None)
  Receive Date: 20051121
  Receipt Date: 20051107
  Transmission Date: 20060501
  Serious: Yes (Life-Threatening, Disabling)
  Sender: FDA-Public Use
  Company Number: HQWYE236125OCT05

PATIENT
  Age: 55 Year
  Sex: Female

DRUGS (11)
  1. MYLOTARG [Suspect]
     Indication: ACUTE MYELOID LEUKAEMIA RECURRENT
     Dosage: A SINGLE 6MG/M2 DOSE
     Route: 041
     Dates: start: 20050924, end: 20050924
  2. CARBENIN (BETAMIPRON/PANIPENEM) [Concomitant]
  3. ISEPACIN (ISEPAMICIN SULFATE) [Concomitant]
  4. MAXIPIME [Concomitant]
  5. AMIKACIN SULFATE [Concomitant]
  6. PRODIF (FOSFLUCONAZOLE) [Concomitant]
  7. ALBUMIN (HUMAN) [Concomitant]
  8. ANTITHROMBIN III (ANTITHROMBIN III) [Concomitant]
  9. UNSPECIFIED ANTIFUNGAL [Concomitant]
  10. FOY (GABEXATE MESILATE) [Concomitant]
  11. FRAGMIN [Concomitant]

REACTIONS (8)
  - BLOOD CREATININE INCREASED [None]
  - BLOOD LACTATE DEHYDROGENASE INCREASED [None]
  - DISEASE PROGRESSION [None]
  - HEPATOMEGALY [None]
  - LEUKAEMIA [None]
  - PYREXIA [None]
  - SEPSIS [None]
  - VENOOCCLUSIVE LIVER DISEASE [None]
